FAERS Safety Report 23152193 (Version 2)
Quarter: 2023Q4

REPORT INFORMATION
  Report Type: Report from Study
  Country: CA (occurrence: CA)
  Receive Date: 20231107
  Receipt Date: 20231226
  Transmission Date: 20240110
  Serious: Yes (Life-Threatening, Hospitalization, Other)
  Sender: FDA-Public Use
  Company Number: CA-ABBVIE-5480074

PATIENT
  Age: 71 Year
  Sex: Female

DRUGS (2)
  1. RINVOQ [Suspect]
     Active Substance: UPADACITINIB
     Indication: Rheumatoid arthritis
     Dosage: FORM STRENGTH: 15MG
     Route: 048
     Dates: start: 20211101
  2. RINVOQ [Suspect]
     Active Substance: UPADACITINIB
     Indication: Rheumatoid arthritis
     Dosage: FORM STRENGTH: 15MG
     Route: 048

REACTIONS (8)
  - Biliary sepsis [Unknown]
  - Arthralgia [Unknown]
  - Biliary tract disorder [Unknown]
  - Fall [Unknown]
  - Ankle fracture [Recovered/Resolved]
  - Arthropod bite [Unknown]
  - Ankle fracture [Unknown]
  - Spinal operation [Unknown]

NARRATIVE: CASE EVENT DATE: 20220101
